FAERS Safety Report 25714921 (Version 1)
Quarter: 2025Q3

REPORT INFORMATION
  Report Type: Spontaneous
  Country: US (occurrence: US)
  Receive Date: 20250822
  Receipt Date: 20250822
  Transmission Date: 20251021
  Serious: No
  Sender: PHARMACOSMOS A/S
  Company Number: US-NEBO-702153

PATIENT
  Age: 19 Year
  Sex: Male

DRUGS (1)
  1. MONOFERRIC [Suspect]
     Active Substance: FERRIC DERISOMALTOSE
     Indication: Product used for unknown indication

REACTIONS (2)
  - Sneezing [Unknown]
  - Erythema [Unknown]
